FAERS Safety Report 10166755 (Version 1)
Quarter: 2014Q2

REPORT INFORMATION
  Report Type: Spontaneous
  Country: US (occurrence: None)
  Receive Date: 20140508
  Receipt Date: 20140508
  Transmission Date: 20141212
  Serious: Yes (Other)
  Sender: FDA-Public Use
  Company Number: 2014P1003661

PATIENT
  Age: 29 Year
  Sex: Female
  Weight: 79.38 kg

DRUGS (4)
  1. LAMOTRIGINE [Suspect]
     Indication: CONVULSION
     Route: 048
     Dates: start: 201310
  2. KEPPRA [Concomitant]
  3. VITAMIN [Concomitant]
  4. MAGNESIUM [Concomitant]

REACTIONS (2)
  - Stress [None]
  - Mental disorder [None]
